FAERS Safety Report 9455676 (Version 4)
Quarter: 2013Q4

REPORT INFORMATION
  Report Type: Spontaneous
  Country: JP (occurrence: JP)
  Receive Date: 20130813
  Receipt Date: 20131108
  Transmission Date: 20140711
  Serious: Yes (Hospitalization)
  Sender: FDA-Public Use
  Company Number: JP-PFIZER INC-2013229440

PATIENT
  Age: 12 Year
  Sex: Female
  Weight: 38 kg

DRUGS (1)
  1. GENOTROPIN TC [Suspect]
     Indication: TURNER^S SYNDROME
     Dosage: 2.25 MG, 1X/DAY
     Route: 058
     Dates: start: 20121217

REACTIONS (1)
  - Adenoidal hypertrophy [Not Recovered/Not Resolved]
